FAERS Safety Report 24728889 (Version 1)
Quarter: 2024Q4

REPORT INFORMATION
  Report Type: Spontaneous
  Country: CN (occurrence: CN)
  Receive Date: 20241212
  Receipt Date: 20241212
  Transmission Date: 20250114
  Serious: Yes (Other)
  Sender: ABBVIE
  Company Number: CN-ABBVIE-6039993

PATIENT
  Age: 55 Year
  Sex: Female
  Weight: 63 kg

DRUGS (3)
  1. VENETOCLAX [Suspect]
     Active Substance: VENETOCLAX
     Indication: Chemotherapy
     Dosage: 100 MILLIGRAM?ON DAY 1/100 MG, DAY 2/200 MG, DAY 3/300 MG, DAY 4/400 MG * 25 DAYS, FOR 25 DAYS, 2...
     Route: 048
     Dates: start: 20241115, end: 20241210
  2. AZACITIDINE [Suspect]
     Active Substance: AZACITIDINE
     Indication: Chemotherapy
     Dosage: 100 MILLIGRAM
     Route: 058
     Dates: start: 20241115, end: 20241121
  3. ILAPRAZOLE [Concomitant]
     Active Substance: ILAPRAZOLE
     Indication: Hyperchlorhydria
     Dosage: 10 MG IVGTT QD
     Dates: start: 20241117, end: 20241120

REACTIONS (8)
  - Gastrointestinal haemorrhage [Unknown]
  - Arthralgia [Recovering/Resolving]
  - Dysphagia [Recovering/Resolving]
  - Vomiting [Recovering/Resolving]
  - Myalgia [Recovering/Resolving]
  - Myelosuppression [Not Recovered/Not Resolved]
  - Nausea [Recovering/Resolving]
  - Granulocyte count decreased [Not Recovered/Not Resolved]

NARRATIVE: CASE EVENT DATE: 20241117
